FAERS Safety Report 20527266 (Version 2)
Quarter: 2022Q1

REPORT INFORMATION
  Report Type: Report from Study
  Country: HU (occurrence: HU)
  Receive Date: 20220228
  Receipt Date: 20220328
  Transmission Date: 20220423
  Serious: Yes (Hospitalization)
  Sender: FDA-Public Use
  Company Number: HU-AMGEN-HUNCT2022034786

PATIENT
  Age: 7 Year
  Sex: Female
  Weight: 22.8 kg

DRUGS (3)
  1. DENOSUMAB [Suspect]
     Active Substance: DENOSUMAB
     Indication: Osteogenesis imperfecta
     Dosage: 0.33 MILLILITER
     Route: 058
     Dates: start: 20210831, end: 20210831
  2. CALCIUM [Concomitant]
     Active Substance: CALCIUM
     Indication: Osteogenesis imperfecta
     Dosage: 1000 MILLIGRAM
     Route: 048
     Dates: start: 20180403
  3. VITAMIN D3 [Concomitant]
     Active Substance: CHOLECALCIFEROL
     Indication: Osteogenesis imperfecta
     Dosage: 1000 INTERNATIONAL UNIT
     Route: 048
     Dates: start: 20180403

REACTIONS (1)
  - Hypercalcaemia [Recovered/Resolved]

NARRATIVE: CASE EVENT DATE: 20220209
